FAERS Safety Report 14491952 (Version 1)
Quarter: 2018Q1

REPORT INFORMATION
  Report Type: Spontaneous
  Country: JP (occurrence: JP)
  Receive Date: 20180206
  Receipt Date: 20180206
  Transmission Date: 20180509
  Serious: Yes (Hospitalization, Disabling, Other)
  Sender: FDA-Public Use
  Company Number: JP-ASTRAZENECA-2018SE14639

PATIENT
  Age: 75 Year
  Sex: Female
  Weight: 51 kg

DRUGS (19)
  1. WARFARIN [Suspect]
     Active Substance: WARFARIN
     Indication: PROPHYLAXIS
     Dosage: 3.0MG UNKNOWN
     Route: 048
     Dates: start: 20160722
  2. ALESION [Suspect]
     Active Substance: EPINASTINE HYDROCHLORIDE
     Indication: PRURITUS
     Dosage: 20.0MG UNKNOWN
     Route: 048
     Dates: start: 20161117, end: 20170209
  3. ARTIST [Suspect]
     Active Substance: CARVEDILOL
     Indication: HYPERTENSION
     Dosage: 5.0MG UNKNOWN
     Route: 048
     Dates: start: 20160322
  4. AMITIZA [Concomitant]
     Active Substance: LUBIPROSTONE
     Indication: CONSTIPATION
     Dosage: 48.0UG UNKNOWN
     Route: 048
     Dates: start: 20160408
  5. D-SORBITOL [Concomitant]
     Indication: CONSTIPATION PROPHYLAXIS
     Dosage: 20.0ML UNKNOWN
     Route: 048
     Dates: start: 20160620, end: 20160715
  6. NATRIX [Concomitant]
     Active Substance: INDAPAMIDE
     Indication: CARDIAC FAILURE
     Dosage: 2.0MG UNKNOWN
     Route: 048
     Dates: start: 20160202, end: 20161129
  7. FERROUS SULFATE. [Suspect]
     Active Substance: FERROUS SULFATE
     Indication: ANAEMIA
     Dosage: 105.0MG UNKNOWN
     Route: 048
     Dates: start: 20161128, end: 20170216
  8. NEXIUM [Suspect]
     Active Substance: ESOMEPRAZOLE MAGNESIUM
     Indication: PROPHYLAXIS AGAINST GASTROINTESTINAL ULCER
     Dosage: 20.0MG UNKNOWN
     Route: 048
     Dates: start: 20160722, end: 20161207
  9. WARFARIN [Suspect]
     Active Substance: WARFARIN
     Indication: PROPHYLAXIS
     Dosage: 4.0MG UNKNOWN
     Route: 048
     Dates: start: 20150512
  10. DARBEPOETIN ALFA [Suspect]
     Active Substance: DARBEPOETIN ALFA
     Indication: IGA NEPHROPATHY
     Dosage: 180.0UG UNKNOWN
     Route: 065
     Dates: start: 20160405
  11. GLUCOSE [Suspect]
     Active Substance: DEXTROSE
     Indication: MEDICATION DILUTION
     Dosage: 90.0ML UNKNOWN
     Route: 041
     Dates: start: 20161115, end: 20161207
  12. DIART [Concomitant]
     Active Substance: AZOSEMIDE
     Indication: CARDIAC FAILURE
     Dosage: 60.0MG UNKNOWN
     Route: 048
     Dates: start: 20150225, end: 20161109
  13. ALOSENN [Suspect]
     Active Substance: SENNA LEAF
     Indication: CONSTIPATION
     Dosage: 0.5G AS REQUIRED
     Route: 048
  14. MAGNESIUM OXIDE. [Suspect]
     Active Substance: MAGNESIUM OXIDE
     Indication: CONSTIPATION
     Dosage: 750.0MG UNKNOWN
     Route: 048
     Dates: start: 20161114, end: 20170105
  15. ARGAMATE [Concomitant]
     Active Substance: CALCIUM POLYSTYRENE SULFONATE
     Indication: HYPERKALAEMIA
     Route: 048
     Dates: start: 20151110, end: 20161114
  16. LENDORMIN [Concomitant]
     Active Substance: BROTIZOLAM
     Indication: INSOMNIA
     Dosage: 0.25MG UNKNOWN
     Route: 048
     Dates: start: 20150701
  17. HEPARIN SODIUM. [Suspect]
     Active Substance: HEPARIN SODIUM
     Indication: PROPHYLAXIS
     Dosage: 10000.0IU UNKNOWN
     Route: 065
     Dates: start: 20161115, end: 20161207
  18. HERBESSER [Concomitant]
     Active Substance: DILTIAZEM HYDROCHLORIDE
     Indication: HYPERTENSION
     Dosage: 100.0MG UNKNOWN
     Route: 048
     Dates: start: 20160322, end: 20161122
  19. TEPRENONE [Concomitant]
     Active Substance: TEPRENONE
     Indication: PROPHYLAXIS
     Dosage: 50.0MG UNKNOWN
     Route: 048
     Dates: start: 20150717

REACTIONS (5)
  - Gastric ulcer haemorrhage [Recovering/Resolving]
  - Cardiac failure chronic [Not Recovered/Not Resolved]
  - Carotid artery thrombosis [Recovered/Resolved with Sequelae]
  - Hypercapnia [Not Recovered/Not Resolved]
  - Cardiac failure congestive [Recovering/Resolving]

NARRATIVE: CASE EVENT DATE: 20160325
